FAERS Safety Report 16241981 (Version 2)
Quarter: 2019Q3

REPORT INFORMATION
  Report Type: Spontaneous
  Country: JP (occurrence: JP)
  Receive Date: 20190426
  Receipt Date: 20190729
  Transmission Date: 20191004
  Serious: Yes (Life-Threatening, Hospitalization)
  Sender: FDA-Public Use
  Company Number: JP-ROCHE-2306867

PATIENT
  Age: 47 Year
  Sex: Female
  Weight: 59 kg

DRUGS (14)
  1. PERJETA [Suspect]
     Active Substance: PERTUZUMAB
     Dosage: STRENGTH: 420MG/14ML
     Route: 041
     Dates: start: 20181211
  2. HERCEPTIN [Suspect]
     Active Substance: TRASTUZUMAB
     Indication: BREAST CANCER
     Route: 041
     Dates: start: 20181120, end: 20190312
  3. HERCEPTIN [Suspect]
     Active Substance: TRASTUZUMAB
     Route: 041
     Dates: start: 20190606
  4. DECADRON [Concomitant]
     Active Substance: DEXAMETHASONE
     Dosage: DOSAGE IS UNCERTAIN.
     Route: 065
     Dates: start: 20181120, end: 20190325
  5. HERCEPTIN [Suspect]
     Active Substance: TRASTUZUMAB
     Route: 041
     Dates: start: 20190627
  6. PERJETA [Suspect]
     Active Substance: PERTUZUMAB
     Indication: BREAST CANCER
     Dosage: STRENGTH: 420MG/14ML
     Route: 041
     Dates: start: 20181120
  7. PROTECADIN [Concomitant]
     Active Substance: LAFUTIDINE
     Dosage: DOSAGE IS UNCERTAIN.
     Route: 065
     Dates: start: 20181120, end: 20190325
  8. DOCETAXEL. [Suspect]
     Active Substance: DOCETAXEL
     Indication: BREAST CANCER
     Dosage: MOST RECENT DOSE WAS RECEIVED ON 12/MAR/2019
     Route: 041
     Dates: start: 20181120
  9. NASEA [Concomitant]
     Active Substance: RAMOSETRON HYDROCHLORIDE
     Dosage: DOSAGE IS UNCERTAIN.
     Route: 065
     Dates: start: 20181120, end: 20190325
  10. LOXONIN [Concomitant]
     Active Substance: LOXOPROFEN SODIUM
     Dosage: DOSAGE IS UNCERTAIN.
     Route: 065
     Dates: start: 20181120, end: 20190325
  11. METHYCOBAL [Concomitant]
     Active Substance: METHYLCOBALAMIN
     Dosage: DOSAGE IS UNCERTAIN.
     Route: 065
     Dates: start: 20181120, end: 20190325
  12. PERJETA [Suspect]
     Active Substance: PERTUZUMAB
     Dosage: STRENGTH: 420MG/14ML
     Route: 041
     Dates: start: 20190606
  13. PERJETA [Suspect]
     Active Substance: PERTUZUMAB
     Dosage: STRENGTH: 420MG/14ML
     Route: 041
     Dates: start: 20190627
  14. ALDACTONE A [Concomitant]
     Active Substance: SPIRONOLACTONE
     Dosage: DOSAGE IS UNCERTAIN.
     Route: 065
     Dates: start: 20190312, end: 20190325

REACTIONS (2)
  - Urticaria [Recovered/Resolved]
  - Interstitial lung disease [Recovering/Resolving]

NARRATIVE: CASE EVENT DATE: 20190104
